FAERS Safety Report 12863610 (Version 3)
Quarter: 2016Q4

REPORT INFORMATION
  Report Type: Spontaneous
  Country: US (occurrence: US)
  Receive Date: 20161019
  Receipt Date: 20161102
  Transmission Date: 20170207
  Serious: Yes (Hospitalization, Other)
  Sender: FDA-Public Use
  Company Number: US-SAOL THERAPEUTICS-2016SAO00853

PATIENT
  Age: 51 Year
  Sex: Female
  Weight: 73.47 kg

DRUGS (2)
  1. LIORESAL [Suspect]
     Active Substance: BACLOFEN
     Indication: MUSCLE SPASTICITY
     Dosage: 615 ?G, \DAY
     Route: 037
  2. LIORESAL [Suspect]
     Active Substance: BACLOFEN
     Indication: MULTIPLE SCLEROSIS
     Dosage: 600 ?G, UNK

REACTIONS (8)
  - Confusional state [Recovered/Resolved]
  - Device battery issue [Recovered/Resolved]
  - Urinary tract infection [Unknown]
  - Drug withdrawal syndrome [Recovered/Resolved]
  - Encephalopathy [Recovered/Resolved]
  - Discomfort [Recovered/Resolved]
  - Lethargy [Recovered/Resolved]
  - Overdose [Recovered/Resolved]

NARRATIVE: CASE EVENT DATE: 2016
